FAERS Safety Report 8619519-2 (Version None)
Quarter: 2012Q3

REPORT INFORMATION
  Report Type: 
  Country: None (occurrence: None)
  Receive Date: 20120824
  Receipt Date: 20120416
  Transmission Date: 20120928
  Serious: No
  Sender: FDA-Public Use
  Company Number: US-ASTRAZENECA-2012SE21538

PATIENT
  Age: 61 Year
  Sex: Female

DRUGS (13)
  1. FISH OIL [Concomitant]
  2. MULTIVITAMIN [Concomitant]
  3. SYMBICORT [Suspect]
     Route: 055
  4. VENTOLIN [Concomitant]
  5. VIMOVO [Suspect]
     Route: 048
  6. CRESTOR [Suspect]
     Route: 048
  7. SYNTHROID [Concomitant]
  8. TRIAMTERENE [Concomitant]
  9. NEXIUM [Concomitant]
  10. BISOPROLOL FUMARATE [Concomitant]
  11. CALCIUM [Concomitant]
  12. DICYCLOMINE [Concomitant]
  13. MECLIZINE HCL [Concomitant]

REACTIONS (1)
  - ADVERSE EVENT [None]
